FAERS Safety Report 6680063-3 (Version None)
Quarter: 2010Q2

REPORT INFORMATION
  Report Type: 
  Country: None (occurrence: None)
  Receive Date: 20100413
  Receipt Date: 20100410
  Transmission Date: 20101027
  Serious: No
  Sender: FDA-Public Use
  Company Number: US-ROXANE LABORATORIES, INC.-2010-RO-00411RO

PATIENT
  Age: 27 Year
  Sex: Female

DRUGS (1)
  1. FLUTICASONE PROPIONATE [Suspect]
     Indication: NASAL CONGESTION
     Route: 045
     Dates: start: 20100406, end: 20100407

REACTIONS (2)
  - AGEUSIA [None]
  - ANOSMIA [None]
